FAERS Safety Report 15645780 (Version 1)
Quarter: 2018Q4

REPORT INFORMATION
  Report Type: Spontaneous
  Country: US (occurrence: US)
  Receive Date: 20181121
  Receipt Date: 20181121
  Transmission Date: 20190205
  Serious: Yes (Death)
  Sender: FDA-Public Use
  Company Number: PHHY2018US161197

PATIENT

DRUGS (1)
  1. ETANERCEPT [Suspect]
     Active Substance: ETANERCEPT
     Indication: LANGERHANS^ CELL HISTIOCYTOSIS
     Dosage: 0.4 MG/KG (TWICE PER WEEK)
     Route: 058

REACTIONS (3)
  - Langerhans^ cell histiocytosis [Fatal]
  - Product use in unapproved indication [Unknown]
  - Malignant neoplasm progression [Fatal]
